FAERS Safety Report 5728540-3 (Version None)
Quarter: 2008Q2

REPORT INFORMATION
  Report Type: 
  Country: None (occurrence: None)
  Receive Date: 20080502
  Receipt Date: 20080502
  Transmission Date: 20081010
  Serious: Yes (Hospitalization)
  Sender: FDA-Public Use
  Company Number: None

PATIENT
  Age: 66 Year
  Sex: Male
  Weight: 105.45 kg

DRUGS (2)
  1. LISINOPRIL [Suspect]
     Dosage: 40 MG  EVERY DAY  PO
     Route: 048
     Dates: start: 20071217, end: 20080123
  2. HYDROCHLOROTHIAZIDE [Suspect]
     Dosage: 25 MG  EVERY DAY  PO
     Route: 048
     Dates: start: 20071217, end: 20080123

REACTIONS (3)
  - NAUSEA [None]
  - RENAL FAILURE ACUTE [None]
  - VOMITING [None]
